FAERS Safety Report 15674861 (Version 2)
Quarter: 2019Q1

REPORT INFORMATION
  Report Type: Spontaneous
  Country: US (occurrence: US)
  Receive Date: 20181130
  Receipt Date: 20190313
  Transmission Date: 20190417
  Serious: No
  Sender: FDA-Public Use
  Company Number: US-ELI_LILLY_AND_COMPANY-US201811013762

PATIENT
  Sex: Female

DRUGS (6)
  1. HUMULIN R [Suspect]
     Active Substance: INSULIN HUMAN
     Dosage: 25 IU, TID
  2. HYDROCHLOROTHIAZIDE. [Concomitant]
     Active Substance: HYDROCHLOROTHIAZIDE
     Indication: PRODUCT USED FOR UNKNOWN INDICATION
  3. HUMULIN R [Suspect]
     Active Substance: INSULIN HUMAN
     Dosage: UNK UNK, VIA SLIDING SCALE
  4. HUMULIN R [Suspect]
     Active Substance: INSULIN HUMAN
     Dosage: 25 IU, TID
  5. HUMULIN R [Suspect]
     Active Substance: INSULIN HUMAN
     Indication: TYPE 2 DIABETES MELLITUS
     Dosage: UNK, SLIDING SCALE
     Route: 058
     Dates: start: 201703
  6. HUMULIN R [Suspect]
     Active Substance: INSULIN HUMAN
     Dosage: UNK UNK, VIA SLIDING SCALE

REACTIONS (2)
  - Blood glucose increased [Recovered/Resolved]
  - Incorrect dose administered [Unknown]
